FAERS Safety Report 9174452 (Version 1)
Quarter: 2013Q1

REPORT INFORMATION
  Report Type: Spontaneous
  Country: SI (occurrence: SI)
  Receive Date: 20130320
  Receipt Date: 20130320
  Transmission Date: 20140127
  Serious: Yes (Other)
  Sender: FDA-Public Use
  Company Number: SI-PFIZER INC-2013078982

PATIENT
  Age: 69 Year
  Sex: Male

DRUGS (24)
  1. FARMORUBICIN [Suspect]
     Indication: PLASMA CELL MYELOMA
     Dosage: 9 MG, 1X/DAY
     Dates: start: 200404, end: 200406
  2. DEXAMETHASONE SODIUM PHOSPHATE [Suspect]
     Indication: PLASMA CELL MYELOMA
     Dosage: 40 MG, 1X/DAY, 4 DAYS SUCCESSIVELY, REPEATED EVERY 4 WEEKS
     Dates: start: 200404, end: 200406
  3. DEXAMETHASONE SODIUM PHOSPHATE [Suspect]
     Dosage: 40 MG/ DAY, 1ST, 4TH, 8TH, 11TH DAY, REPEATED EVERY 3 WEEKS
     Dates: start: 200410, end: 200411
  4. DEXAMETHASONE SODIUM PHOSPHATE [Suspect]
     Dosage: 40 MG/ DAY, 1ST, 4TH, 8TH, 11TH DAY, REPEATED EVERY 3 WEEKS
     Dates: start: 200805, end: 200808
  5. DEXAMETHASONE SODIUM PHOSPHATE [Suspect]
     Dosage: 40 MG/ DAY, 1ST, 4TH, 8TH, 11TH DAY, REPEATED EVERY 3 WEEKS
     Dates: start: 200905, end: 200909
  6. DEXAMETHASONE SODIUM PHOSPHATE [Suspect]
     Dosage: 40 MG/DAY, 1ST, 4TH, 8TH, 11TH DAY, REPEATED EVERY 3 WEEKS
     Dates: start: 201003, end: 201008
  7. DEXAMETHASONE SODIUM PHOSPHATE [Suspect]
     Dosage: 20 MG/14 DAYS
     Dates: start: 201107, end: 201112
  8. VINCRISTINE [Suspect]
     Indication: PLASMA CELL MYELOMA
     Dosage: 0.4 MG, 1X/DAY
     Dates: start: 200404, end: 200406
  9. THALIDOMIDE [Suspect]
     Indication: PLASMA CELL MYELOMA
     Dosage: 100 MG, 1X/DAY
     Dates: start: 200309, end: 200404
  10. METHYLPREDNISOLONE [Concomitant]
     Indication: PLASMA CELL MYELOMA
     Dosage: 150 MG, 1X/DAY, 4 DAYS SUCCESSIVELY, ONCE PER MONTH
     Dates: start: 200309, end: 200404
  11. METHYLPREDNISOLONE [Concomitant]
     Dosage: 32 MG/WEEK
     Dates: start: 201012, end: 201103
  12. CYCLOPHOSPHAMIDE [Concomitant]
     Indication: PLASMA CELL MYELOMA
     Dosage: 100 MG, 1X/DAY CONTINUOUSLY
     Dates: start: 200802, end: 200804
  13. CYCLOPHOSPHAMIDE [Concomitant]
     Dosage: 100 MG/ DAY CONTINUOUSLY
     Dates: start: 200909, end: 201003
  14. LENALIDOMIDE [Concomitant]
     Indication: PLASMA CELL MYELOMA
     Dosage: 15 MG, 1X/DAY 3 WEEKS PER MONTH
     Dates: start: 201012, end: 201103
  15. ARSENIC TRIOXIDE [Concomitant]
     Indication: PLASMA CELL MYELOMA
     Dosage: 10 MG/M2, 1X/DAY
     Route: 042
     Dates: start: 200410, end: 200411
  16. BORTEZOMIB [Concomitant]
     Indication: PLASMA CELL MYELOMA
     Dosage: 1.3 MG/M2/DAY, CYCLIC 1ST, 4TH, 8TH, 11TH DAY, REPEATED EVERY 3 WEEKS
     Dates: start: 200503, end: 200505
  17. BORTEZOMIB [Concomitant]
     Dosage: 1.3MG/M2/DAY
     Dates: start: 200805, end: 200808
  18. BORTEZOMIB [Concomitant]
     Dosage: 1.3MG/M2/DAY
     Dates: start: 200905, end: 200909
  19. BORTEZOMIB [Concomitant]
     Dosage: 1.3MG/M2/DAY
     Dates: start: 201003, end: 201008
  20. BORTEZOMIB [Concomitant]
     Dosage: 1.3 MG/M2/14 DAYS,1,4,8,11, REPEATED EVERY 3 WEEKS
     Dates: start: 201107, end: 201112
  21. MELPHALAN [Concomitant]
     Indication: PLASMA CELL MYELOMA
     Dosage: 0.25 MG/KG/DAY 4 DAYS, REPEAT AFTER 4 - 6 WEEKS
     Route: 042
     Dates: start: 200107, end: 200205
  22. MELPHALAN [Concomitant]
     Dosage: 20-50 MG, UNK
     Route: 042
     Dates: start: 201104, end: 201105
  23. VITAMIN D [Concomitant]
     Dosage: UNK
  24. PREDNISONE [Concomitant]
     Indication: PLASMA CELL MYELOMA
     Dosage: 2.5 MG/KG/DAY 4 DAYS, REPEAT AFTER 4 - 6 WEEKS
     Dates: start: 200107, end: 200205

REACTIONS (1)
  - Neuropathy peripheral [Unknown]
